FAERS Safety Report 6027999-4 (Version None)
Quarter: 2008Q4

REPORT INFORMATION
  Report Type: 
  Country: None (occurrence: None)
  Receive Date: 20081230
  Receipt Date: 20081215
  Transmission Date: 20090506
  Serious: Yes (Death)
  Sender: FDA-Public Use
  Company Number: B0551654A

PATIENT
  Age: 6 Day

DRUGS (4)
  1. CEFTAZIDIME SODIUM [Suspect]
     Dosage: 100 MG/KG/PER DAY/INTRAVENOUS
     Route: 042
  2. VANCOMYCIN HYDROCHLORIDE [Concomitant]
  3. NETILMICIN SULFATE [Concomitant]
  4. METRONIDAZOLE [Concomitant]

REACTIONS (7)
  - BLOOD GLUCOSE INCREASED [None]
  - CSF GLUCOSE INCREASED [None]
  - HAEMODYNAMIC INSTABILITY [None]
  - INFANTILE APNOEIC ATTACK [None]
  - MENINGITIS NEONATAL [None]
  - NECROTISING COLITIS [None]
  - SEPTIC SHOCK [None]
